FAERS Safety Report 4817725-6 (Version None)
Quarter: 2005Q3

REPORT INFORMATION
  Report Type: 
  Country: None (occurrence: None)
  Receive Date: 20050929
  Receipt Date: 20050808
  Transmission Date: 20060218
  Serious: No
  Sender: FDA-Public Use
  Company Number: 05P-163-0307748-00

PATIENT
  Age: 44 Year
  Sex: Female
  Weight: 88.4514 kg

DRUGS (10)
  1. HUMIRA [Suspect]
     Indication: RHEUMATOID ARTHRITIS
     Dosage: 40 MG, 1 IN 2 WK, SUBCUTANEOUS
     Route: 058
     Dates: start: 20040101
  2. PREDNISONE [Concomitant]
  3. FOLIC ACID [Concomitant]
  4. METHOTREXATE [Concomitant]
  5. TROMETHAZINE [Concomitant]
  6. CELECOXIB [Concomitant]
  7. HYDROXYCHLOROQUINE PHOSPHATE [Concomitant]
  8. ESTROGENS CONJUGATED [Concomitant]
  9. CYCLOBENZAPRINE HCL [Concomitant]
  10. TRAMADOL HYDROCHLORIDE [Concomitant]

REACTIONS (1)
  - PULMONARY MASS [None]
